FAERS Safety Report 7504851-6 (Version None)
Quarter: 2011Q2

REPORT INFORMATION
  Report Type: 
  Country: None (occurrence: None)
  Receive Date: 20110526
  Receipt Date: 20110520
  Transmission Date: 20111010
  Serious: Yes (Life-Threatening, Hospitalization)
  Sender: FDA-Public Use
  Company Number: GB-BRISTOL-MYERS SQUIBB COMPANY-15762412

PATIENT
  Age: 68 Year
  Sex: Female

DRUGS (7)
  1. ASPIRIN [Suspect]
     Indication: ANTIPLATELET THERAPY
     Route: 048
  2. OMEPRAZOLE [Concomitant]
  3. CITALOPRAM HYDROBROMIDE [Suspect]
     Indication: DEPRESSION
     Route: 048
  4. WARFARIN SODIUM [Suspect]
     Indication: PULMONARY EMBOLISM
     Route: 048
     Dates: start: 20110320
  5. FERROUS FUMARATE [Concomitant]
  6. PREDNISOLONE [Suspect]
     Indication: MUSCULOSKELETAL PAIN
     Route: 048
  7. SIMVASTATIN [Concomitant]

REACTIONS (2)
  - RECTAL HAEMORRHAGE [None]
  - GASTROINTESTINAL ULCER [None]
